FAERS Safety Report 10360731 (Version 2)
Quarter: 2014Q3

REPORT INFORMATION
  Report Type: Report from Study
  Country: US (occurrence: US)
  Receive Date: 20140804
  Receipt Date: 20140919
  Transmission Date: 20150326
  Serious: Yes (Hospitalization)
  Sender: FDA-Public Use
  Company Number: US-GLAXOSMITHKLINE-A1028059A

PATIENT
  Age: 52 Year
  Sex: Female
  Weight: 62.5 kg

DRUGS (2)
  1. GSK1120212 [Suspect]
     Active Substance: TRAMETINIB
     Indication: BREAST CANCER
     Dosage: 1.5MG PER DAY
     Route: 048
     Dates: start: 20130523
  2. GSK2141795 [Suspect]
     Active Substance: UPROSERTIB
     Indication: BREAST CANCER
     Dosage: 50MG PER DAY
     Route: 048
     Dates: start: 20130523

REACTIONS (2)
  - Alanine aminotransferase increased [Not Recovered/Not Resolved]
  - Aspartate aminotransferase increased [Not Recovered/Not Resolved]

NARRATIVE: CASE EVENT DATE: 20130530
